FAERS Safety Report 24137020 (Version 1)
Quarter: 2024Q3

REPORT INFORMATION
  Report Type: Spontaneous
  Country: RO (occurrence: RO)
  Receive Date: 20240725
  Receipt Date: 20240725
  Transmission Date: 20241017
  Serious: Yes (Life-Threatening, Hospitalization, Other)
  Sender: GRANULES INDIA
  Company Number: RO-GRANULES-RO-2024GRALIT00287

PATIENT
  Age: 53 Year
  Sex: Male

DRUGS (4)
  1. METOPROLOL SUCCINATE [Suspect]
     Active Substance: METOPROLOL SUCCINATE
     Indication: Supraventricular tachycardia
     Route: 042
  2. ADENOSINE [Concomitant]
     Active Substance: ADENOSINE
     Route: 065
  3. ADENOSINE [Concomitant]
     Active Substance: ADENOSINE
     Route: 065
  4. ADENOSINE [Concomitant]
     Active Substance: ADENOSINE
     Route: 065

REACTIONS (3)
  - Atrioventricular block complete [Recovered/Resolved]
  - Cardiac arrest [Recovered/Resolved]
  - Drug ineffective for unapproved indication [Unknown]
